FAERS Safety Report 21576082 (Version 1)
Quarter: 2022Q4

REPORT INFORMATION
  Report Type: Report from Study
  Country: US (occurrence: None)
  Receive Date: 20221110
  Receipt Date: 20221110
  Transmission Date: 20230113
  Serious: Yes (Other)
  Sender: FDA-Public Use
  Company Number: US-Merck Healthcare KGaA-9364049

PATIENT
  Sex: Male

DRUGS (4)
  1. REBIF [Suspect]
     Active Substance: INTERFERON BETA-1A
     Indication: Multiple sclerosis
     Dates: start: 20130810, end: 20140523
  2. REBIF [Suspect]
     Active Substance: INTERFERON BETA-1A
     Dates: start: 20150710, end: 20191018
  3. REBIF [Suspect]
     Active Substance: INTERFERON BETA-1A
     Route: 058
     Dates: start: 20191109, end: 20200920
  4. REBIF [Suspect]
     Active Substance: INTERFERON BETA-1A
     Dates: start: 20201023, end: 20201201

REACTIONS (1)
  - Cerebrovascular accident [Unknown]
